FAERS Safety Report 6037919-4 (Version None)
Quarter: 2009Q1

REPORT INFORMATION
  Report Type: 
  Country: None (occurrence: None)
  Receive Date: 20090115
  Receipt Date: 20090113
  Transmission Date: 20090719
  Serious: Yes (Other)
  Sender: FDA-Public Use
  Company Number: US-ALLERGAN-0900345US

PATIENT
  Sex: Female

DRUGS (8)
  1. SANCTURA XR [Suspect]
     Indication: HYPERTONIC BLADDER
     Dosage: UNK, UNKNOWN
     Route: 048
     Dates: start: 20090110, end: 20090111
  2. RESTASIS [Concomitant]
     Indication: DRY EYE
     Dosage: UNK, UNKNOWN
     Route: 047
  3. PREDNISOLONE ACETATE SUS [Concomitant]
     Indication: DRUG USE FOR UNKNOWN INDICATION
     Dosage: UNK, QD
     Route: 047
  4. MURO 128 [Concomitant]
  5. MURO 128 [Concomitant]
  6. ALBUTEROL [Concomitant]
     Dosage: 90 UG, UNK
  7. FLOVENT [Concomitant]
     Dosage: 220 UG, BID
  8. NEXIUM [Concomitant]
     Dosage: 40 MG, PRN

REACTIONS (2)
  - ASTHENIA [None]
  - HYPOTENSION [None]
